FAERS Safety Report 5814433-X (Version None)
Quarter: 2008Q3

REPORT INFORMATION
  Report Type: 
  Country: None (occurrence: None)
  Receive Date: 20080718
  Receipt Date: 20080709
  Transmission Date: 20090109
  Serious: Yes (Hospitalization, Other)
  Sender: FDA-Public Use
  Company Number: PHHY2008FR14132

PATIENT
  Age: 79 Year
  Sex: Male

DRUGS (5)
  1. COTAREG [Interacting]
     Indication: HYPERTENSION
     Dosage: 80 MG, QD
     Route: 048
     Dates: end: 20080526
  2. TARKA [Interacting]
     Indication: HYPERTENSION
     Dosage: 1 DF, QD
     Route: 048
     Dates: start: 20080523, end: 20080526
  3. ACEBUTOLOL [Suspect]
     Dosage: 100 MG, QD
     Dates: end: 20080526
  4. PRAVADUAL [Suspect]
     Dosage: 1 DF, QD
     Route: 048
     Dates: end: 20080526
  5. TEMESTA [Suspect]
     Indication: ANXIETY
     Dosage: 1 MG, QD
     Route: 048
     Dates: end: 20080526

REACTIONS (5)
  - BLOOD CREATININE INCREASED [None]
  - CARDIAC DISORDER [None]
  - DRUG INTERACTION [None]
  - HYPERKALAEMIA [None]
  - RENAL FAILURE [None]
